FAERS Safety Report 23528087 (Version 1)
Quarter: 2024Q1

REPORT INFORMATION
  Report Type: Spontaneous
  Country: US (occurrence: None)
  Receive Date: 20240215
  Receipt Date: 20240215
  Transmission Date: 20240409
  Serious: Yes (Hospitalization)
  Sender: FDA-Public Use
  Company Number: None

PATIENT
  Sex: Male

DRUGS (2)
  1. NUCALA [Suspect]
     Active Substance: MEPOLIZUMAB
     Indication: Asthma
     Dosage: 300MG Q28DAYS SC
     Route: 058
     Dates: start: 202401
  2. FASENRA PEN AUTOINJECTOR [Concomitant]

REACTIONS (1)
  - Hospitalisation [None]
